FAERS Safety Report 9105913 (Version 1)
Quarter: 2013Q1

REPORT INFORMATION
  Report Type: Spontaneous
  Country: US (occurrence: US)
  Receive Date: 20130221
  Receipt Date: 20130221
  Transmission Date: 20140127
  Serious: Yes (Other)
  Sender: FDA-Public Use
  Company Number: US-ABBOTT-13P-163-1050440-00

PATIENT
  Age: 16 Year
  Sex: Female
  Weight: 54 kg

DRUGS (7)
  1. LUPRON DEPOT [Suspect]
     Indication: ENDOMETRIOSIS
     Dates: start: 20121126
  2. AYGESTIN [Suspect]
     Indication: ENDOMETRIOSIS
     Route: 048
     Dates: start: 20121217
  3. PREMARIN [Suspect]
     Route: 048
     Dates: start: 20121217
  4. GABAPENTIN [Concomitant]
     Indication: PAIN
     Dates: start: 20121206
  5. TRAMADOL [Concomitant]
     Indication: PAIN
     Dates: start: 20121206
  6. MIRALAX [Concomitant]
     Indication: CONSTIPATION
     Dates: start: 201210
  7. SENNA [Concomitant]
     Indication: CONSTIPATION
     Dates: start: 201210

REACTIONS (7)
  - Polydipsia psychogenic [Not Recovered/Not Resolved]
  - Eating disorder [Unknown]
  - Polyuria [Recovered/Resolved]
  - Electrolyte imbalance [Recovered/Resolved]
  - Urinary incontinence [Recovered/Resolved]
  - Thirst [Unknown]
  - Nausea [Unknown]
